FAERS Safety Report 24271784 (Version 1)
Quarter: 2024Q3

REPORT INFORMATION
  Report Type: Other
  Country: RU (occurrence: RU)
  Receive Date: 20240902
  Receipt Date: 20240902
  Transmission Date: 20241017
  Serious: Yes (Death, Life-Threatening, Hospitalization, Other)
  Sender: BIONPHARMA
  Company Number: RU-Bion-013745

PATIENT
  Age: 33 Year
  Sex: Female

DRUGS (7)
  1. VALPROIC ACID [Suspect]
     Active Substance: VALPROIC ACID
     Indication: Status epilepticus
     Dosage: 2500 MG/DAY
  2. TOPIRAMATE [Concomitant]
     Active Substance: TOPIRAMATE
     Indication: Status epilepticus
  3. IMMUNE GLOBULIN [Concomitant]
     Indication: Status epilepticus
  4. THIOPENTAL SODIUM [Concomitant]
     Active Substance: THIOPENTAL SODIUM
     Indication: Status epilepticus
  5. METHYLPREDNISOLONE [Concomitant]
     Active Substance: METHYLPREDNISOLONE
     Indication: Immunosuppressant drug therapy
  6. RITUXIMAB [Concomitant]
     Active Substance: RITUXIMAB
     Indication: Immunosuppressant drug therapy
  7. VALPROIC ACID [Suspect]
     Active Substance: VALPROIC ACID
     Indication: Status epilepticus
     Dosage: 2000 MG/DAY

REACTIONS (7)
  - Drug ineffective [Fatal]
  - Exposure during pregnancy [Unknown]
  - Hepatic failure [Fatal]
  - Multiple organ dysfunction syndrome [Fatal]
  - Hepatic cytolysis [Fatal]
  - Cholestasis [Fatal]
  - Coma [Fatal]
